FAERS Safety Report 6089092-4 (Version None)
Quarter: 2009Q1

REPORT INFORMATION
  Report Type: 
  Country: None (occurrence: None)
  Receive Date: 20090219
  Receipt Date: 20090209
  Transmission Date: 20090719
  Serious: Yes (Other)
  Sender: FDA-Public Use
  Company Number: ENT 2009-0008

PATIENT
  Age: 59 Year
  Sex: Female

DRUGS (10)
  1. COMTAN [Suspect]
     Indication: PARKINSON'S DISEASE
     Dosage: 300 MG (100 MG, 3 IN 1 D) ORAL
     Route: 048
     Dates: start: 20081002, end: 20081016
  2. GASSMOTIN [Concomitant]
  3. DIOVAN [Concomitant]
  4. LIPITOR [Concomitant]
  5. PREMARIN [Concomitant]
  6. ALOSENN [Concomitant]
  7. DEPAS [Concomitant]
  8. MYSLEE [Concomitant]
  9. CARBIDOPA AND LEVODOPA [Concomitant]
  10. PRAMIPEXOLE DIHYDROCHLORIDE [Concomitant]

REACTIONS (2)
  - FEELING ABNORMAL [None]
  - LOSS OF CONSCIOUSNESS [None]
